FAERS Safety Report 6106259-7 (Version None)
Quarter: 2009Q1

REPORT INFORMATION
  Report Type: 
  Country: None (occurrence: None)
  Receive Date: 20090306
  Receipt Date: 20090226
  Transmission Date: 20090719
  Serious: Yes (Hospitalization)
  Sender: FDA-Public Use
  Company Number: US-ABBOTT-09P-163-0559480-00

PATIENT
  Age: 76 Year
  Sex: Male
  Weight: 64.468 kg

DRUGS (4)
  1. SIMCOR [Suspect]
     Indication: BLOOD CHOLESTEROL INCREASED
     Dosage: 500/20MG PER DAY
     Route: 048
     Dates: start: 20090129, end: 20090209
  2. SIMCOR [Suspect]
     Dosage: 500/20MG PER DAY
     Dates: start: 20090221, end: 20090226
  3. ASPIRIN [Concomitant]
     Indication: DRUG USE FOR UNKNOWN INDICATION
     Dosage: TAKES WITH SIMCOR
     Dates: start: 20090129
  4. MULTI-VITAMIN [Concomitant]
     Indication: VITAMIN SUPPLEMENTATION

REACTIONS (5)
  - FAECES HARD [None]
  - HAEMATOCHEZIA [None]
  - HAEMOGLOBIN DECREASED [None]
  - HYPOTENSION [None]
  - PRESYNCOPE [None]
